FAERS Safety Report 23272739 (Version 1)
Quarter: 2023Q4

REPORT INFORMATION
  Report Type: Spontaneous
  Country: US (occurrence: None)
  Receive Date: 20231206
  Receipt Date: 20231206
  Transmission Date: 20240109
  Serious: No
  Sender: FDA-Public Use
  Company Number: None

PATIENT
  Age: 56 Year
  Sex: Female

DRUGS (1)
  1. CIPROFLOXACIN [Suspect]
     Active Substance: CIPROFLOXACIN
     Indication: Sinusitis

REACTIONS (9)
  - Gait inability [None]
  - Arthropathy [None]
  - Peripheral nerve lesion [None]
  - Meniscus injury [None]
  - Muscle rupture [None]
  - Diarrhoea haemorrhagic [None]
  - International normalised ratio increased [None]
  - Gastrointestinal disorder [None]
  - Clostridium difficile infection [None]

NARRATIVE: CASE EVENT DATE: 20231205
